FAERS Safety Report 22859692 (Version 2)
Quarter: 2023Q4

REPORT INFORMATION
  Report Type: Report from Study
  Country: TH (occurrence: TH)
  Receive Date: 20230824
  Receipt Date: 20231019
  Transmission Date: 20240109
  Serious: Yes (Other)
  Sender: FDA-Public Use
  Company Number: TH-002147023-NVSC2023TH014964

PATIENT
  Age: 65 Year
  Sex: Female

DRUGS (20)
  1. KISQALI [Suspect]
     Active Substance: RIBOCICLIB
     Indication: Breast cancer metastatic
     Dosage: 200 MG, QD (2 TABLETS) (1ST TREATMENT CYCLE)
     Route: 048
     Dates: start: 20220629
  2. KISQALI [Suspect]
     Active Substance: RIBOCICLIB
     Dosage: 200 MG, QD (2 TABLETS) (TAKE DAY 1 TO DAY 21 (CYCLE 1)
     Route: 048
     Dates: start: 20220720
  3. KISQALI [Suspect]
     Active Substance: RIBOCICLIB
     Dosage: 200 MG, QD (2 TABLETS) (2ND TREATMENT CYCLE)
     Route: 048
     Dates: start: 202207, end: 202207
  4. KISQALI [Suspect]
     Active Substance: RIBOCICLIB
     Dosage: 200 MG, QD (1 TABLET) (2ND AND 3RD TREATMENT CYCLES)
     Route: 048
     Dates: start: 202207, end: 202207
  5. KISQALI [Suspect]
     Active Substance: RIBOCICLIB
     Dosage: 200 MG, QD (1 TABLET) (TAKE DAY 1 TO DAY 21 (CYCLE 2 TO 5))
     Route: 048
  6. KISQALI [Suspect]
     Active Substance: RIBOCICLIB
     Dosage: 200 MG, QD (1 TABLET) (4TH TREATMENT CYCLES)
     Route: 048
     Dates: start: 20230412
  7. KISQALI [Suspect]
     Active Substance: RIBOCICLIB
     Dosage: 200 MG, QD (1 TABLET) (5TH TREATMENT CYCLES)
     Route: 048
     Dates: start: 20230425
  8. KISQALI [Suspect]
     Active Substance: RIBOCICLIB
     Dosage: 200 MG, QD (2 TABLET) (6TH TREATMENT CYCLES)
     Route: 048
     Dates: start: 20230614
  9. KISQALI [Suspect]
     Active Substance: RIBOCICLIB
     Dosage: 200 MG, QD (2 TABLET) (7TH TREATMENT CYCLES)
     Route: 048
     Dates: start: 20230719
  10. KISQALI [Suspect]
     Active Substance: RIBOCICLIB
     Dosage: 200 MG, QD (2 TABLET) (8TH TREATMENT CYCLES)
     Route: 048
     Dates: start: 20230816
  11. TAMOXIFEN [Suspect]
     Active Substance: TAMOXIFEN
     Indication: Product used for unknown indication
     Dosage: 20 MG, QD (TAKEN 1 TABLET ONCE DAILY AFTER BREAKFAST)
     Route: 048
  12. LORAZEPAM [Concomitant]
     Active Substance: LORAZEPAM
     Indication: Stress
     Dosage: 20 UNK, QD (TAKEN 1 TABLET ONCE DAILY BEFORE BED)
     Route: 048
  13. LORAZEPAM [Concomitant]
     Active Substance: LORAZEPAM
     Indication: Sleep disorder
     Dosage: 1 DOSAGE FORM, QD (1 TABLET ORALLY TAKEN 1 TABLET ONCE DAILY BEFORE BEDTIME; AMOUNT 60)
     Route: 048
  14. SENNA [Concomitant]
     Active Substance: SENNA LEAF\SENNOSIDES\SENNOSIDES A AND B
     Indication: Constipation
     Dosage: 400 MG, QD, TAKE 2 TABLETS PER DAY, BEFORE BEDTIME)
     Route: 048
  15. FERROUS FUMARATE [Concomitant]
     Active Substance: FERROUS FUMARATE
     Indication: Supplementation therapy
     Dosage: UNK, BID (TAKEN 1 TABLET TWICE DAILY) AMOUNT 30
     Route: 048
  16. FERROUS FUMARATE [Concomitant]
     Active Substance: FERROUS FUMARATE
     Dosage: 1 DOSAGE FORM, BID (200 MG , ORALLY TAKEN 1 TABLET TWICE DAILY AFTER BREAKFAST-DINNER; AMOUNT 60)
     Route: 048
  17. FOLIC ACID [Concomitant]
     Active Substance: FOLIC ACID
     Indication: Supplementation therapy
     Dosage: UNK, QD (TAKEN 1 TABLET ONCE DAILY AFTER BREAKFAST) AMOUNT 15
     Route: 048
  18. FOLIC ACID [Concomitant]
     Active Substance: FOLIC ACID
     Dosage: 1 DOSAGE FORM, QD (5 MG, ORALLY TAKEN 1 TABLET ONCE DAILY AFTER BREAKFAST; AMOUNT 30)
     Route: 048
  19. ATARAX [Concomitant]
     Active Substance: HYDROXYZINE HYDROCHLORIDE
     Indication: Product used for unknown indication
     Dosage: 1 DOSAGE FORM, QD (10 TABLET ORALLY TAKEN 1 TABLET ONCE DAILY BEFORE BEDTIME; AMOUNT 30)
     Route: 048
  20. DEXTROMETHORPHAN [Concomitant]
     Active Substance: DEXTROMETHORPHAN
     Indication: Product used for unknown indication
     Dosage: 1 DOSAGE FORM, TID (15 TABLET ORALLY TAKEN 1 TABLET THREE TIMES A DAY AFTER BREAKFAST-LUNCH-DINNER;
     Route: 048

REACTIONS (8)
  - Breast cancer metastatic [Unknown]
  - Malignant neoplasm progression [Unknown]
  - Dysphonia [Unknown]
  - Malaise [Unknown]
  - Liver disorder [Unknown]
  - Drug intolerance [Unknown]
  - Liver function test increased [Unknown]
  - Nausea [Unknown]

NARRATIVE: CASE EVENT DATE: 20230119
